FAERS Safety Report 5533859-5 (Version None)
Quarter: 2007Q4

REPORT INFORMATION
  Report Type: 
  Country: None (occurrence: None)
  Receive Date: 20071204
  Receipt Date: 20071128
  Transmission Date: 20080405
  Serious: Yes (Hospitalization)
  Sender: FDA-Public Use
  Company Number: US-MERCK-0711USA05875

PATIENT
  Age: 45 Year
  Sex: Female
  Weight: 82 kg

DRUGS (12)
  1. DECADRON [Suspect]
     Indication: MULTIPLE MYELOMA
     Route: 048
     Dates: end: 20070330
  2. DECADRON [Suspect]
     Route: 048
     Dates: start: 20070510
  3. DECADRON [Suspect]
     Route: 048
     Dates: start: 20020101
  4. REVLIMID [Concomitant]
     Indication: MULTIPLE MYELOMA
     Route: 048
     Dates: start: 20060914, end: 20070330
  5. REVLIMID [Concomitant]
     Route: 048
     Dates: start: 20070510
  6. NEURONTIN [Concomitant]
     Route: 048
     Dates: start: 20040920
  7. VICODIN [Concomitant]
     Indication: PAIN
     Route: 048
     Dates: start: 20040920
  8. DURAGESIC-100 [Concomitant]
     Indication: PAIN
     Route: 061
  9. DURAGESIC-100 [Concomitant]
     Route: 061
     Dates: start: 20060221, end: 20060222
  10. DURAGESIC-100 [Concomitant]
     Route: 061
     Dates: start: 20060323, end: 20070421
  11. ASPIRIN [Concomitant]
     Route: 048
  12. ASCORBIC ACID [Concomitant]
     Route: 065

REACTIONS (3)
  - BODY TEMPERATURE INCREASED [None]
  - MALAISE [None]
  - SKIN INFECTION [None]
